FAERS Safety Report 17679170 (Version 1)
Quarter: 2020Q2

REPORT INFORMATION
  Report Type: Spontaneous
  Country: CN (occurrence: CN)
  Receive Date: 20200417
  Receipt Date: 20200417
  Transmission Date: 20200714
  Serious: Yes (Hospitalization)
  Sender: FDA-Public Use
  Company Number: CN-BAXTER-2020BAX008161

PATIENT
  Age: 38 Year
  Sex: Female
  Weight: 61 kg

DRUGS (4)
  1. 0.9% SODIUM CHLORIDE INJECTION [Suspect]
     Active Substance: SODIUM CHLORIDE
     Indication: MEDICATION DILUTION
     Dosage: 0.9% NS 100 ML + CYCLOPHOSPHAMIDE 1.2 G
     Route: 041
     Dates: start: 20200318, end: 20200318
  2. ENDOXAN [Suspect]
     Active Substance: CYCLOPHOSPHAMIDE
     Dosage: 0.9% NS 100 ML + CYCLOPHOSPHAMIDE 1.3 G
     Route: 041
     Dates: start: 20200319, end: 20200319
  3. 0.9% SODIUM CHLORIDE INJECTION [Suspect]
     Active Substance: SODIUM CHLORIDE
     Dosage: 0.9% NS 100 ML + CYCLOPHOSPHAMIDE 1.3 G
     Route: 041
     Dates: start: 20200319, end: 20200319
  4. ENDOXAN [Suspect]
     Active Substance: CYCLOPHOSPHAMIDE
     Indication: NON-HODGKIN^S LYMPHOMA
     Dosage: 0.9% NS 100 ML + CYCLOPHOSPHAMIDE 1.2 G
     Route: 041
     Dates: start: 20200318, end: 20200318

REACTIONS (1)
  - Bone marrow failure [Recovering/Resolving]

NARRATIVE: CASE EVENT DATE: 20200326
